FAERS Safety Report 5630714-7 (Version None)
Quarter: 2008Q1

REPORT INFORMATION
  Report Type: 
  Country: None (occurrence: None)
  Receive Date: 20080219
  Receipt Date: 20080208
  Transmission Date: 20080703
  Serious: Yes (Hospitalization, Other)
  Sender: FDA-Public Use
  Company Number: US-JNJFOC-20080202034

PATIENT
  Sex: Female
  Weight: 117.03 kg

DRUGS (6)
  1. FENTANYL TRANSDERMAL SYSTEM [Suspect]
     Indication: PAIN
     Route: 062
  2. DURAGESIC-100 [Suspect]
     Indication: PAIN
     Route: 062
  3. LORTAB [Concomitant]
     Indication: PAIN
     Dosage: 10/325 MG, AS NEEDED
     Route: 048
  4. CELEBREX [Concomitant]
     Indication: INFLAMMATION
     Route: 048
  5. REQUIP [Concomitant]
     Indication: RESTLESS LEGS SYNDROME
     Dosage: TAKEN IN PM
     Route: 048
  6. ACTOMET [Concomitant]
     Indication: TYPE 2 DIABETES MELLITUS
     Dosage: 15/500 MG, 1 IN AM AND 1 IN PM
     Route: 048

REACTIONS (10)
  - APPLICATION SITE ERYTHEMA [None]
  - APPLICATION SITE IRRITATION [None]
  - APPLICATION SITE VESICLES [None]
  - CONVULSION [None]
  - DEPRESSION [None]
  - INSOMNIA [None]
  - MEMORY IMPAIRMENT [None]
  - MIGRAINE [None]
  - NEURALGIA [None]
  - WRONG TECHNIQUE IN DRUG USAGE PROCESS [None]
